FAERS Safety Report 8024625-X (Version None)
Quarter: 2011Q4

REPORT INFORMATION
  Report Type: 
  Country: None (occurrence: None)
  Receive Date: 20111130
  Receipt Date: 20110920
  Transmission Date: 20120403
  Serious: Yes (Other)
  Sender: FDA-Public Use
  Company Number: PHEH2011US01104

PATIENT
  Sex: Male

DRUGS (12)
  1. DIOVAN [Suspect]
     Indication: HYPERTENSION
     Dosage: 320 MG, QD
  2. LOPRESSOR [Suspect]
  3. ALDACTONE [Suspect]
  4. NIFEDIPINE [Concomitant]
  5. LEVERMIR (LEVERMIR) [Concomitant]
  6. SIMVASTATIN [Concomitant]
  7. METOPROLOL TARTRATE [Concomitant]
  8. PLAVIX [Concomitant]
  9. PROCARDIA [Suspect]
  10. METFORMIN HCL [Concomitant]
  11. TEKTURNA [Suspect]
  12. JANUVIA [Concomitant]

REACTIONS (4)
  - PRURITUS [None]
  - BLOOD PRESSURE INADEQUATELY CONTROLLED [None]
  - RASH [None]
  - HYPERTENSION [None]
